FAERS Safety Report 20126816 (Version 1)
Quarter: 2021Q4

REPORT INFORMATION
  Report Type: Spontaneous
  Country: GB (occurrence: GB)
  Receive Date: 20211129
  Receipt Date: 20211129
  Transmission Date: 20220303
  Serious: Yes (Other)
  Sender: FDA-Public Use
  Company Number: None

PATIENT
  Age: 72 Year
  Sex: Female
  Weight: 61.68 kg

DRUGS (2)
  1. PREDNISOLONE [Suspect]
     Active Substance: PREDNISOLONE
     Indication: Ill-defined disorder
     Dosage: 60MG REDUCING TO 1MG
     Route: 048
     Dates: start: 20190212, end: 20210426
  2. LEVOTHYROXINE SODIUM ANHYDROUS [Concomitant]
     Active Substance: LEVOTHYROXINE SODIUM ANHYDROUS
     Indication: Ill-defined disorder

REACTIONS (4)
  - Nausea [Recovering/Resolving]
  - Dizziness [Unknown]
  - Vertigo [Unknown]
  - Hallucination [Unknown]

NARRATIVE: CASE EVENT DATE: 20210322
